FAERS Safety Report 4842999-5 (Version None)
Quarter: 2005Q4

REPORT INFORMATION
  Report Type: 
  Country: None (occurrence: None)
  Receive Date: 20051130
  Receipt Date: 20051128
  Transmission Date: 20060501
  Serious: Yes (Hospitalization)
  Sender: FDA-Public Use
  Company Number: 200512015GDS

PATIENT
  Sex: Male
  Weight: 69 kg

DRUGS (1)
  1. AVELOX [Suspect]

REACTIONS (1)
  - MYOCARDIAL INFARCTION [None]
